FAERS Safety Report 9551158 (Version 2)
Quarter: 2013Q4

REPORT INFORMATION
  Report Type: Spontaneous
  Country: US (occurrence: US)
  Receive Date: 20130925
  Receipt Date: 20131015
  Transmission Date: 20140711
  Serious: Yes (Hospitalization)
  Sender: FDA-Public Use
  Company Number: US-BIOGENIDEC-2013BI089873

PATIENT
  Age: 48 Year
  Sex: Female

DRUGS (18)
  1. TECFIDERA [Suspect]
     Indication: MULTIPLE SCLEROSIS
     Route: 048
     Dates: start: 20130611
  2. RESTASIS [Concomitant]
  3. GEODON [Concomitant]
  4. FOLIC ACID [Concomitant]
  5. GEMFIBROZIL [Concomitant]
  6. ASPIRIN [Concomitant]
  7. PRILOSEC [Concomitant]
  8. ALPRAZOLAM [Concomitant]
  9. PROMETHAZINE [Concomitant]
  10. STOOL SOFTENER [Concomitant]
  11. TRIAMCINOLON [Concomitant]
  12. CLONAZEPAM [Concomitant]
  13. TRAZADONE [Concomitant]
  14. OXYCODONE [Concomitant]
  15. LEXAPRO [Concomitant]
  16. COUMADIN [Concomitant]
  17. ADVAIR [Concomitant]
  18. SIMVASTATIN [Concomitant]

REACTIONS (2)
  - Prothrombin time shortened [Recovered/Resolved]
  - Pruritus [Recovered/Resolved]
